FAERS Safety Report 22216244 (Version 1)
Quarter: 2023Q2

REPORT INFORMATION
  Report Type: Spontaneous
  Country: US (occurrence: US)
  Receive Date: 20230417
  Receipt Date: 20230417
  Transmission Date: 20230722
  Serious: Yes (Other)
  Sender: FDA-Public Use
  Company Number: US-ASTELLAS-2023US010782

PATIENT
  Age: 78 Year
  Sex: Female

DRUGS (7)
  1. LEXISCAN [Suspect]
     Active Substance: REGADENOSON
     Indication: Chest pain
     Dosage: 0.4MG/5ML, OTHER (ONCE) (ADMINISTERED OVER 10 SECONDS)
     Route: 042
     Dates: start: 20230317, end: 20230317
  2. LEXISCAN [Suspect]
     Active Substance: REGADENOSON
     Indication: Chest pain
     Dosage: 0.4MG/5ML, OTHER (ONCE) (ADMINISTERED OVER 10 SECONDS)
     Route: 042
     Dates: start: 20230317, end: 20230317
  3. LEXISCAN [Suspect]
     Active Substance: REGADENOSON
     Indication: Chest pain
     Dosage: 0.4MG/5ML, OTHER (ONCE) (ADMINISTERED OVER 10 SECONDS)
     Route: 042
     Dates: start: 20230317, end: 20230317
  4. LEXISCAN [Suspect]
     Active Substance: REGADENOSON
     Indication: Chest pain
     Dosage: 0.4MG/5ML, OTHER (ONCE) (ADMINISTERED OVER 10 SECONDS)
     Route: 042
     Dates: start: 20230317, end: 20230317
  5. ATORVASTATIN [Concomitant]
     Active Substance: ATORVASTATIN
     Indication: Product used for unknown indication
     Dosage: 10 MG, ONCE DAILY (AT NIGHT TIME)
     Route: 048
  6. EPIPEN [Concomitant]
     Active Substance: EPINEPHRINE
     Indication: Product used for unknown indication
     Dosage: 0.3MG/0.3ML, UNKNOWN FREQ.
     Route: 065
  7. NITROGLYCERIN [Concomitant]
     Active Substance: NITROGLYCERIN
     Indication: Product used for unknown indication
     Dosage: 0.4 MG, OTHER (EVERY 5 MINS AS NEEDED UPTO 3 DOSES)
     Route: 060

REACTIONS (6)
  - Nodal rhythm [Recovered/Resolved]
  - Hypotension [Recovered/Resolved]
  - Bradycardia [Recovered/Resolved]
  - Atrioventricular block complete [Unknown]
  - Unresponsive to stimuli [Recovered/Resolved]
  - Dizziness [Unknown]

NARRATIVE: CASE EVENT DATE: 20230317
